FAERS Safety Report 4711048-1 (Version None)
Quarter: 2005Q3

REPORT INFORMATION
  Report Type: 
  Country: None (occurrence: None)
  Receive Date: 20050711
  Receipt Date: 20050704
  Transmission Date: 20060218
  Serious: Yes (Other)
  Sender: FDA-Public Use
  Company Number: PHNR2005AU01068

PATIENT
  Age: 70 Year
  Sex: Female

DRUGS (4)
  1. TEGRETOL [Suspect]
     Dosage: 400 MG, DAILY
     Dates: start: 20040601, end: 20040719
  2. COVERSYL PLUS [Concomitant]
     Dosage: DOSE UNSPECIFIED
  3. VERAPAMIL HYDROCHLORIDE [Concomitant]
     Dosage: DOSE UNSPECIFIED
  4. SERETIDE [Concomitant]
     Dosage: DOSE UNSPECIFIED

REACTIONS (2)
  - HAEMORRHAGE [None]
  - RASH [None]
